FAERS Safety Report 8359818-5 (Version None)
Quarter: 2012Q2

REPORT INFORMATION
  Report Type: 
  Country: None (occurrence: None)
  Receive Date: 20120515
  Receipt Date: 20120509
  Transmission Date: 20120825
  Serious: Yes (Other)
  Sender: FDA-Public Use
  Company Number: PHEH2012US002875

PATIENT
  Sex: Female

DRUGS (3)
  1. RADIATION THERAPY [Concomitant]
  2. FEMARA [Suspect]
     Indication: BREAST CANCER STAGE III
     Dosage: 2.5 MG, UNK
     Dates: start: 20060501, end: 20100201
  3. CHEMOTHERAPEUTICS [Concomitant]
     Dosage: 3, UNK, A WEEK

REACTIONS (6)
  - HYPOAESTHESIA [None]
  - GAIT DISTURBANCE [None]
  - NERVE INJURY [None]
  - PERIPHERAL SENSORY NEUROPATHY [None]
  - LUMBAR RADICULOPATHY [None]
  - BACK PAIN [None]
